FAERS Safety Report 6589484-0 (Version None)
Quarter: 2010Q1

REPORT INFORMATION
  Report Type: 
  Country: None (occurrence: None)
  Receive Date: 20100212
  Receipt Date: 20100126
  Transmission Date: 20100710
  Serious: Yes (Hospitalization, Disabling, Other)
  Sender: FDA-Public Use
  Company Number: 004196

PATIENT
  Age: 72 Year
  Sex: Male
  Weight: 72 kg

DRUGS (4)
  1. KEPPRA [Suspect]
     Indication: PARTIAL SEIZURES
     Dosage: (2000 MG  BID, UPTITRATED DOSAGE REGIMEN ORAL), (2000 MG ORAL)
     Route: 048
     Dates: start: 20080711, end: 20081201
  2. KEPPRA [Suspect]
     Indication: PARTIAL SEIZURES
     Dosage: (2000 MG  BID, UPTITRATED DOSAGE REGIMEN ORAL), (2000 MG ORAL)
     Route: 048
     Dates: start: 20081201, end: 20090103
  3. OXCARBAZEPINE [Concomitant]
  4. LACOSAMIDE [Concomitant]

REACTIONS (9)
  - COGNITIVE DISORDER [None]
  - COMPLEX PARTIAL SEIZURES [None]
  - DISTURBANCE IN ATTENTION [None]
  - GRAND MAL CONVULSION [None]
  - IRRITABILITY [None]
  - MENTAL DISORDER [None]
  - PSYCHOMOTOR HYPERACTIVITY [None]
  - TENSION [None]
  - TREATMENT FAILURE [None]
